FAERS Safety Report 7207633-8 (Version None)
Quarter: 2011Q1

REPORT INFORMATION
  Report Type: 
  Country: None (occurrence: None)
  Receive Date: 20110103
  Receipt Date: 20101228
  Transmission Date: 20110831
  Serious: Yes (Hospitalization)
  Sender: FDA-Public Use
  Company Number: FR-PFIZER INC-2010179809

PATIENT
  Age: 76 Year
  Sex: Female

DRUGS (4)
  1. MEDROL [Suspect]
     Indication: PREMEDICATION
     Dosage: UNK
     Route: 048
     Dates: start: 20101121, end: 20101123
  2. ZOPHREN [Suspect]
     Indication: PREMEDICATION
     Dosage: UNK
     Route: 042
     Dates: start: 20101122, end: 20101122
  3. TAXOTERE [Suspect]
     Indication: BREAST CANCER
     Dosage: UNK
     Route: 042
     Dates: start: 20101122, end: 20101122
  4. ENDOXAN [Suspect]
     Indication: BREAST CANCER
     Dosage: UNK
     Route: 042
     Dates: start: 20101122, end: 20101122

REACTIONS (2)
  - BACK PAIN [None]
  - INFUSION RELATED REACTION [None]
